FAERS Safety Report 4661000-X (Version None)
Quarter: 2005Q2

REPORT INFORMATION
  Report Type: 
  Country: None (occurrence: None)
  Receive Date: 20050511
  Receipt Date: 20050503
  Transmission Date: 20051028
  Serious: Yes (Death, Other)
  Sender: FDA-Public Use
  Company Number: 2005062969

PATIENT
  Sex: Male

DRUGS (1)
  1. BEXTRA [Suspect]
     Indication: PAIN
     Dates: start: 20041001

REACTIONS (4)
  - COLLAPSE OF LUNG [None]
  - NEOPLASM MALIGNANT [None]
  - ORAL PAIN [None]
  - PAIN [None]
